FAERS Safety Report 11283069 (Version 1)
Quarter: 2015Q3

REPORT INFORMATION
  Report Type: Spontaneous
  Country: US (occurrence: None)
  Receive Date: 20150717
  Receipt Date: 20150717
  Transmission Date: 20151125
  Serious: Yes (Other)
  Sender: FDA-Public Use
  Company Number: None

PATIENT
  Age: 13 Month
  Sex: Female
  Weight: 10.5 kg

DRUGS (9)
  1. MVW [Concomitant]
  2. POLYETHYLENE GLYCOL [Concomitant]
     Active Substance: POLYETHYLENE GLYCOLS
  3. PULMOZYME [Concomitant]
     Active Substance: DORNASE ALFA
  4. ALBUTEROL SULFATE HFA [Concomitant]
  5. NEBULIZER [Concomitant]
     Active Substance: DEVICE
  6. BETHKIS [Suspect]
     Active Substance: TOBRAMYCIN
     Indication: PSEUDOMONAS INFECTION
     Dosage: 4 ML, RESPIRATORY
     Route: 055
     Dates: start: 20150211, end: 20150527
  7. FAMOTIDINE. [Concomitant]
     Active Substance: FAMOTIDINE
  8. CREON [Concomitant]
     Active Substance: PANCRELIPASE AMYLASE\PANCRELIPASE LIPASE\PANCRELIPASE PROTEASE
  9. LANSOPRAZOLE. [Concomitant]
     Active Substance: LANSOPRAZOLE

REACTIONS (2)
  - Product substitution issue [None]
  - Cough [None]

NARRATIVE: CASE EVENT DATE: 20150527
